FAERS Safety Report 6252818-0 (Version None)
Quarter: 2009Q3

REPORT INFORMATION
  Report Type: 
  Country: None (occurrence: None)
  Receive Date: 20090701
  Receipt Date: 20090622
  Transmission Date: 20100115
  Serious: Yes (Hospitalization)
  Sender: FDA-Public Use
  Company Number: DEWYE865428JUL05

PATIENT
  Sex: Male

DRUGS (31)
  1. RAPAMUNE [Suspect]
     Indication: PROPHYLAXIS AGAINST TRANSPLANT REJECTION
     Route: 048
     Dates: start: 20040829, end: 20040831
  2. RAPAMUNE [Suspect]
     Route: 048
     Dates: start: 20040901, end: 20040903
  3. RAPAMUNE [Suspect]
     Route: 048
     Dates: start: 20040904, end: 20040908
  4. RAPAMUNE [Suspect]
     Route: 048
     Dates: start: 20040910, end: 20070528
  5. RAPAMUNE [Suspect]
     Dates: start: 20070529
  6. MYCOPHENOLATE MOFETIL [Suspect]
     Indication: PROPHYLAXIS AGAINST TRANSPLANT REJECTION
     Route: 048
     Dates: start: 20040829, end: 20041108
  7. MYCOPHENOLATE MOFETIL [Suspect]
     Route: 048
     Dates: start: 20041115, end: 20041119
  8. MYCOPHENOLATE MOFETIL [Suspect]
     Route: 048
     Dates: start: 20041120, end: 20041126
  9. MYCOPHENOLATE MOFETIL [Suspect]
     Route: 048
     Dates: start: 20041127, end: 20051121
  10. MYCOPHENOLATE MOFETIL [Suspect]
     Route: 048
     Dates: start: 20051122
  11. PREDNISOLONE [Suspect]
     Indication: PROPHYLAXIS AGAINST TRANSPLANT REJECTION
     Route: 042
     Dates: start: 20040829, end: 20040829
  12. PREDNISOLONE [Suspect]
     Route: 048
     Dates: start: 20040830, end: 20070228
  13. ACTRAPHANE HM [Concomitant]
     Dosage: UNKNOWN
     Dates: start: 20041007, end: 20050408
  14. ACTRAPID HUMAN [Concomitant]
     Dosage: UNKNOWN
     Dates: start: 20040831
  15. AMPHOTERICIN B [Concomitant]
     Dosage: UNKNOWN
     Dates: start: 20040830, end: 20041102
  16. CEFUROXIME [Concomitant]
     Dosage: UNKNOWN
     Dates: start: 20041014, end: 20041119
  17. FLUVASTATIN [Concomitant]
     Dosage: UNKNOWN
     Dates: start: 20040922
  18. KEPINOL [Concomitant]
     Dosage: UNKNOWN
     Dates: start: 20040830, end: 20050228
  19. MADOPAR [Concomitant]
     Dosage: UNKNOWN
     Dates: start: 20030101, end: 20040914
  20. METOPROLOL SUCCINATE [Concomitant]
     Dosage: UNKNOWN
     Dates: start: 20040929
  21. PRAVASTATIN [Concomitant]
     Dosage: UNKNOWN
     Dates: start: 20040929, end: 20050111
  22. RAMIPRIL [Concomitant]
     Dosage: UNKNOWN
     Dates: start: 20040904
  23. REPAGLINIDE [Concomitant]
     Dosage: UNKNOWN
     Dates: start: 20040911, end: 20050408
  24. TORSEMIDE [Concomitant]
     Dosage: UNKNOWN
     Dates: start: 20040903, end: 20040907
  25. ACETYLSALICYLIC ACID [Concomitant]
     Dosage: UNKNOWN
     Dates: start: 20041115
  26. MAGNESIUM SULFATE [Concomitant]
     Dosage: UNKNOWN
     Dates: start: 20040922, end: 20050401
  27. UNACID PD ORAL [Concomitant]
     Dosage: UNKNOWN
     Dates: start: 20040830, end: 20040907
  28. ASPIRIN [Concomitant]
     Dosage: UNKNOWN
     Dates: start: 20041115
  29. AVELOX [Concomitant]
     Dosage: UNKNOWN
     Dates: start: 20041109, end: 20041119
  30. ACTONEL [Concomitant]
     Dosage: UNKNOWN
     Dates: start: 20040819, end: 20070528
  31. ZENAPAX [Concomitant]
     Indication: PROPHYLAXIS AGAINST TRANSPLANT REJECTION
     Dosage: 160 MG (FOUR TIMES IN THE PERIOD)
     Route: 042
     Dates: start: 20040829, end: 20041022

REACTIONS (2)
  - INTERSTITIAL LUNG DISEASE [None]
  - VENOUS THROMBOSIS [None]
